FAERS Safety Report 5600327-1 (Version None)
Quarter: 2008Q1

REPORT INFORMATION
  Report Type: 
  Country: None (occurrence: None)
  Receive Date: 20080123
  Receipt Date: 20080114
  Transmission Date: 20080703
  Serious: Yes (Hospitalization)
  Sender: FDA-Public Use
  Company Number: FR-ASTRAZENECA-2008CG00078

PATIENT
  Age: 17600 Day
  Sex: Female

DRUGS (5)
  1. PULMICORT [Suspect]
     Route: 055
     Dates: start: 20071124, end: 20071130
  2. HEXOMEDINE [Suspect]
     Route: 061
     Dates: start: 20071126, end: 20071130
  3. SPIRAMYCINE [Suspect]
     Indication: COUGH
     Route: 048
     Dates: start: 20071124, end: 20071130
  4. PNEUMOREL [Suspect]
     Route: 048
     Dates: start: 20071124, end: 20071130
  5. VENTOLIN [Suspect]
     Route: 055
     Dates: start: 20071124, end: 20071130

REACTIONS (7)
  - DERMATITIS CONTACT [None]
  - ECZEMA [None]
  - INJECTION SITE URTICARIA [None]
  - PRURIGO [None]
  - RASH ERYTHEMATOUS [None]
  - RASH PAPULAR [None]
  - TOXIC SKIN ERUPTION [None]
